FAERS Safety Report 6385215-8 (Version None)
Quarter: 2009Q4

REPORT INFORMATION
  Report Type: 
  Country: None (occurrence: None)
  Receive Date: 20091002
  Receipt Date: 20080728
  Transmission Date: 20100525
  Serious: Yes (Other)
  Sender: FDA-Public Use
  Company Number: US-ASTRAZENECA-2008UW15473

PATIENT
  Age: 80 Year
  Sex: Female
  Weight: 52.6 kg

DRUGS (6)
  1. ARIMIDEX [Suspect]
     Indication: BREAST CANCER
     Route: 048
  2. GABAPENTIN [Concomitant]
  3. ATENOLOL [Concomitant]
  4. SIMVASTATIN [Concomitant]
  5. SERTRALINE HCL [Concomitant]
  6. ZOLPIDEM [Concomitant]

REACTIONS (2)
  - ARTHRITIS [None]
  - WRIST FRACTURE [None]
